FAERS Safety Report 7191549-X (Version None)
Quarter: 2010Q4

REPORT INFORMATION
  Report Type: 
  Country: None (occurrence: None)
  Receive Date: 20101223
  Receipt Date: 20101217
  Transmission Date: 20110411
  Serious: Yes (Other)
  Sender: FDA-Public Use
  Company Number: US-US-EMD SERONO, INC.-430007N06USA

PATIENT
  Sex: Female
  Weight: 108 kg

DRUGS (13)
  1. NOVANTRONE [Suspect]
     Indication: MULTIPLE SCLEROSIS
     Route: 042
     Dates: start: 20010301, end: 20020111
  2. NOVANTRONE [Suspect]
     Route: 042
     Dates: start: 20020408, end: 20020710
  3. NOVANTRONE [Suspect]
     Route: 042
     Dates: start: 20021014, end: 20021014
  4. NOVANTRONE [Suspect]
     Route: 042
     Dates: start: 20030113, end: 20030428
  5. HYDROCHLOROTHIAZIDE [Concomitant]
     Indication: HYPERTENSION
  6. LISINOPRIL [Concomitant]
  7. MULTI-VITAMINS [Concomitant]
  8. STEROIDS [Concomitant]
     Indication: MULTIPLE SCLEROSIS
  9. ATENOLOL [Concomitant]
     Indication: HYPERTENSION
     Route: 048
  10. IRON SULFATETHIAMIN COMPOUND TAB [Concomitant]
     Indication: ANAEMIA
     Dates: start: 20010301
  11. DYAZIDE [Concomitant]
     Indication: HYPERTENSION
  12. DETROL LA [Concomitant]
  13. MAXALT-MLT [Concomitant]
     Indication: HEADACHE
     Route: 048

REACTIONS (4)
  - CARDIAC MURMUR [None]
  - CHRONIC MYELOID LEUKAEMIA [None]
  - ELECTROCARDIOGRAM T WAVE INVERSION [None]
  - HEART SOUNDS ABNORMAL [None]
